FAERS Safety Report 19748180 (Version 1)
Quarter: 2021Q3

REPORT INFORMATION
  Report Type: Spontaneous
  Country: US (occurrence: US)
  Receive Date: 20210825
  Receipt Date: 20210825
  Transmission Date: 20211014
  Serious: Yes (Other)
  Sender: FDA-Public Use
  Company Number: None

PATIENT
  Age: 82 Year
  Sex: Female
  Weight: 86.18 kg

DRUGS (1)
  1. PROLIA [Suspect]
     Active Substance: DENOSUMAB
     Indication: OSTEOPOROSIS
     Dosage: 60 MG SUBCUTANEOUS Q 6 MONTHS
     Route: 058

REACTIONS (3)
  - Cellulitis [None]
  - Injection site pruritus [None]
  - Scratch [None]

NARRATIVE: CASE EVENT DATE: 20210819
